FAERS Safety Report 7433923-X (Version None)
Quarter: 2011Q2

REPORT INFORMATION
  Report Type: 
  Country: None (occurrence: None)
  Receive Date: 20110420
  Receipt Date: 20110420
  Transmission Date: 20111010
  Serious: Yes (Death)
  Sender: FDA-Public Use
  Company Number: None

PATIENT
  Age: 70 Year
  Sex: Female

DRUGS (6)
  1. HYDROCODONE BITARTRATE AND ACETAMINOPHEN [Concomitant]
  2. REVLIMID [Suspect]
     Indication: MYELOFIBROSIS
     Dosage: REVLIMID 10 MG DAILY ORALLY
     Route: 048
     Dates: start: 20090201, end: 20101001
  3. MORPHINE [Concomitant]
  4. LORAZEPAM [Concomitant]
  5. ZOLPIDEM [Concomitant]
  6. FUROSEMIDE [Concomitant]

REACTIONS (4)
  - ABDOMINAL PAIN [None]
  - THROMBOCYTOPENIA [None]
  - NEUROPATHY PERIPHERAL [None]
  - HAEMORRHAGE [None]
